FAERS Safety Report 7226281-7 (Version None)
Quarter: 2011Q1

REPORT INFORMATION
  Report Type: 
  Country: None (occurrence: None)
  Receive Date: 20110114
  Receipt Date: 20110105
  Transmission Date: 20110831
  Serious: Yes (Hospitalization)
  Sender: FDA-Public Use
  Company Number: PHHY2011FR01225

PATIENT
  Age: 73 Year
  Sex: Male

DRUGS (1)
  1. RASILEZ [Suspect]
     Indication: HYPERTENSION
     Dosage: 1 DF, QD
     Dates: start: 20100601, end: 20101231

REACTIONS (13)
  - IMPATIENCE [None]
  - SENSE OF OPPRESSION [None]
  - DEHYDRATION [None]
  - ABNORMAL BEHAVIOUR [None]
  - SEXUAL ACTIVITY INCREASED [None]
  - MENTAL DISORDER [None]
  - DYSPNOEA [None]
  - DRY THROAT [None]
  - PAIN [None]
  - IRRITABILITY [None]
  - DRY MOUTH [None]
  - MITRAL VALVE INCOMPETENCE [None]
  - SPEECH DISORDER [None]
